FAERS Safety Report 16611178 (Version 5)
Quarter: 2021Q2

REPORT INFORMATION
  Report Type: Spontaneous
  Country: US (occurrence: US)
  Receive Date: 20190722
  Receipt Date: 20210625
  Transmission Date: 20210716
  Serious: Yes (Disabling, Other)
  Sender: FDA-Public Use
  Company Number: US-SA-2019SA195185

PATIENT
  Age: 54 Year
  Sex: Male

DRUGS (20)
  1. TURMERIC [CURCUMA LONGA] [Concomitant]
     Active Substance: HERBALS\TURMERIC
     Dosage: 400 MG
  2. TRIAMCINOLONE ACETONIDE. [Concomitant]
     Active Substance: TRIAMCINOLONE ACETONIDE
     Dosage: UNK
  3. METHOTREXATE. [Suspect]
     Active Substance: METHOTREXATE
     Dosage: UNK
  4. ASPIRIN [ACETYLSALICYLIC ACID] [Concomitant]
     Active Substance: ASPIRIN
     Dosage: 81 MG
  5. MOTRIN IB [Concomitant]
     Active Substance: IBUPROFEN
  6. VALIUM [Concomitant]
     Active Substance: DIAZEPAM
     Dosage: UNK
  7. GABAPENTIN. [Concomitant]
     Active Substance: GABAPENTIN
  8. BACLOFEN. [Concomitant]
     Active Substance: BACLOFEN
     Dosage: 20 MG
  9. VITAMIN B12 [Concomitant]
     Active Substance: CYANOCOBALAMIN
     Dosage: 1000 UG
  10. MOTRIN IB [Concomitant]
     Active Substance: IBUPROFEN
     Dosage: 200 MG
  11. ASPIRIN [ACETYLSALICYLIC ACID] [Concomitant]
     Active Substance: ASPIRIN
  12. BACLOFEN. [Concomitant]
     Active Substance: BACLOFEN
     Dosage: UNK
  13. KEPPRA [Concomitant]
     Active Substance: LEVETIRACETAM
  14. VITAMIN D3 [Concomitant]
     Active Substance: CHOLECALCIFEROL
     Dosage: 1000 IU
  15. KEPPRA [Concomitant]
     Active Substance: LEVETIRACETAM
     Dosage: 500 MG
  16. VITAMIN B12 [Concomitant]
     Active Substance: CYANOCOBALAMIN
  17. AUBAGIO [Suspect]
     Active Substance: TERIFLUNOMIDE
     Indication: MULTIPLE SCLEROSIS
     Dosage: 14 MG, QD
     Route: 048
     Dates: start: 20190304
  18. VITAMIN D3 [Concomitant]
     Active Substance: CHOLECALCIFEROL
  19. GABAPENTIN. [Concomitant]
     Active Substance: GABAPENTIN
     Dosage: 600 MG
  20. TRIAMTERENE. [Concomitant]
     Active Substance: TRIAMTERENE
     Dosage: 50 MG

REACTIONS (17)
  - Androgens increased [Unknown]
  - Rash [Unknown]
  - Rheumatoid arthritis [Unknown]
  - Pain in extremity [Unknown]
  - Dysstasia [Unknown]
  - Hypoaesthesia [Unknown]
  - Acne [Unknown]
  - Pruritus [Unknown]
  - Metastases to central nervous system [Unknown]
  - Decreased interest [Unknown]
  - Palpitations [Unknown]
  - Hepatic enzyme increased [Recovered/Resolved]
  - Prostate cancer [Unknown]
  - Depressed mood [Unknown]
  - Sciatica [Unknown]
  - Urticaria [Unknown]
  - Paraesthesia [Unknown]

NARRATIVE: CASE EVENT DATE: 201907
